FAERS Safety Report 14789546 (Version 1)
Quarter: 2018Q2

REPORT INFORMATION
  Report Type: Spontaneous
  Country: US (occurrence: US)
  Receive Date: 20180423
  Receipt Date: 20180423
  Transmission Date: 20180711
  Serious: No
  Sender: FDA-Public Use
  Company Number: US-TEVA-804900ACC

PATIENT

DRUGS (1)
  1. PRAVASTATIN. [Suspect]
     Active Substance: PRAVASTATIN

REACTIONS (5)
  - Rash [Unknown]
  - Hyperhidrosis [Unknown]
  - Eye pain [Unknown]
  - Product use issue [Unknown]
  - Headache [Unknown]
